FAERS Safety Report 25320074 (Version 1)
Quarter: 2025Q2

REPORT INFORMATION
  Report Type: Spontaneous
  Country: GB (occurrence: GB)
  Receive Date: 20250515
  Receipt Date: 20250515
  Transmission Date: 20250717
  Serious: Yes (Other)
  Sender: Norvium Bioscience
  Company Number: GB-Norvium Bioscience LLC-080158

PATIENT
  Age: 47 Year
  Sex: Female

DRUGS (1)
  1. SERTRALINE HYDROCHLORIDE [Suspect]
     Active Substance: SERTRALINE HYDROCHLORIDE
     Indication: Product used for unknown indication

REACTIONS (1)
  - Multiple acyl-coenzyme A dehydrogenase deficiency [Recovering/Resolving]
